FAERS Safety Report 12080940 (Version 1)
Quarter: 2016Q1

REPORT INFORMATION
  Report Type: Report from Study
  Country: JP (occurrence: JP)
  Receive Date: 20160216
  Receipt Date: 20160216
  Transmission Date: 20160526
  Serious: Yes (Death)
  Sender: FDA-Public Use
  Company Number: JP-FERRINGPH-2014FE02465

PATIENT

DRUGS (9)
  1. GASTER [Concomitant]
     Active Substance: FAMOTIDINE
     Dosage: UNK
     Dates: start: 20140225
  2. DENOTAS [Concomitant]
     Active Substance: CALCIUM CARBONATE\CHOLECALCIFEROL\MAGNESIUM CARBONATE
     Dosage: UNK
     Dates: start: 20130814
  3. PROSEXOL [Concomitant]
     Active Substance: ETHINYL ESTRADIOL
     Dosage: UNK
     Dates: start: 20140422, end: 20140427
  4. DEGARELIX [Suspect]
     Active Substance: DEGARELIX
     Indication: PROSTATE CANCER METASTATIC
     Dosage: 240 MG, ONCE/SINGLE
     Dates: start: 20130430, end: 20130430
  5. CASODEX [Concomitant]
     Active Substance: BICALUTAMIDE
     Indication: PROSTATE CANCER
     Dosage: UNK
     Dates: end: 20131119
  6. DEGARELIX [Suspect]
     Active Substance: DEGARELIX
     Dosage: 80 MG, MONTHLY
     Route: 058
     Dates: start: 20130522, end: 20140422
  7. RANMARK [Concomitant]
     Active Substance: DENOSUMAB
     Dosage: UNK
     Dates: start: 20130814, end: 20140325
  8. ODYNE [Concomitant]
     Active Substance: FLUTAMIDE
     Dosage: UNK
     Dates: start: 20131120, end: 20131218
  9. ESTRACYT                           /00327002/ [Concomitant]
     Active Substance: ESTRAMUSTINE PHOSPHATE SODIUM
     Dosage: 156.7 UNK, UNK
     Dates: start: 20140225, end: 20140421

REACTIONS (3)
  - Injection site swelling [Recovered/Resolved]
  - Cardiac failure [Fatal]
  - Injection site pain [Recovered/Resolved]

NARRATIVE: CASE EVENT DATE: 20130430
